FAERS Safety Report 8194202-9 (Version None)
Quarter: 2012Q1

REPORT INFORMATION
  Report Type: 
  Country: None (occurrence: None)
  Receive Date: 20120308
  Receipt Date: 20120221
  Transmission Date: 20120608
  Serious: Yes (Other)
  Sender: FDA-Public Use
  Company Number: JP-BAXTER-2011BH031723

PATIENT
  Age: 62 Year
  Sex: Female

DRUGS (19)
  1. OXYCONTIN [Suspect]
     Indication: CANCER PAIN
     Route: 048
     Dates: start: 20100825, end: 20100915
  2. PREDNISOLONE [Suspect]
     Indication: RENAL CELL CARCINOMA
     Route: 048
     Dates: start: 20100825
  3. VINCRISTINE SULFATE [Suspect]
     Indication: RENAL CELL CARCINOMA
     Route: 065
     Dates: start: 20100825
  4. GRANISETRON HCL [Concomitant]
     Indication: PROPHYLAXIS
     Route: 065
     Dates: start: 20100825
  5. POLARAMINE [Concomitant]
     Indication: PROPHYLAXIS
     Route: 048
     Dates: start: 20100902
  6. COTRIM [Concomitant]
     Indication: PROPHYLAXIS
     Route: 048
     Dates: start: 20100909
  7. PREDNISOLONE [Suspect]
     Indication: NON-HODGKIN'S LYMPHOMA
     Route: 048
     Dates: start: 20100825
  8. LANSOPRAZOLE [Concomitant]
     Indication: PROPHYLAXIS
     Route: 048
     Dates: start: 20100825
  9. IBUPROFEN [Concomitant]
     Indication: PROPHYLAXIS
     Route: 048
     Dates: start: 20100902
  10. CYCLOPHOSPHAMIDE [Suspect]
     Indication: NON-HODGKIN'S LYMPHOMA
     Route: 042
     Dates: start: 20100825
  11. CYCLOPHOSPHAMIDE [Suspect]
     Indication: RENAL CELL CARCINOMA
     Route: 042
     Dates: start: 20100825
  12. OXYCONTIN [Suspect]
     Route: 048
     Dates: start: 20100923, end: 20101004
  13. OXYCONTIN [Suspect]
     Route: 048
     Dates: start: 20101005, end: 20101013
  14. MORPHINE [Concomitant]
     Indication: CANCER PAIN
     Route: 048
     Dates: start: 20100825, end: 20100905
  15. VINCRISTINE SULFATE [Suspect]
     Indication: NON-HODGKIN'S LYMPHOMA
     Route: 065
     Dates: start: 20100825
  16. OXYCONTIN [Suspect]
     Route: 048
     Dates: start: 20100916, end: 20100922
  17. DOXORUBICIN HCL [Suspect]
     Indication: RENAL CELL CARCINOMA
     Route: 065
     Dates: start: 20100825
  18. RITUXAN [Concomitant]
     Indication: NON-HODGKIN'S LYMPHOMA
     Route: 065
     Dates: start: 20100902
  19. DOXORUBICIN HCL [Suspect]
     Indication: NON-HODGKIN'S LYMPHOMA
     Route: 065
     Dates: start: 20100825

REACTIONS (5)
  - NAUSEA [None]
  - DEEP VEIN THROMBOSIS [None]
  - NEUTROPHIL COUNT DECREASED [None]
  - FIBRIN DEGRADATION PRODUCTS INCREASED [None]
  - CONSTIPATION [None]
